FAERS Safety Report 5625920-1 (Version None)
Quarter: 2008Q1

REPORT INFORMATION
  Report Type: 
  Country: None (occurrence: None)
  Receive Date: 20080212
  Receipt Date: 20080212
  Transmission Date: 20080703
  Serious: No
  Sender: FDA-Public Use
  Company Number: None

PATIENT
  Age: 45 Year
  Sex: Male
  Weight: 99.7913 kg

DRUGS (1)
  1. ZICAM COLD REMEDY NASAL SPRAY    MATRIXX CORP. [Suspect]
     Indication: NASOPHARYNGITIS
     Dosage: ONE DOSAGE PER INSTRUCTIONS   NASAL
     Route: 045
     Dates: start: 20070201, end: 20070228

REACTIONS (2)
  - ANOSMIA [None]
  - NASAL DISCOMFORT [None]
